FAERS Safety Report 23178950 (Version 2)
Quarter: 2023Q4

REPORT INFORMATION
  Report Type: Spontaneous
  Country: CA (occurrence: CA)
  Receive Date: 20231113
  Receipt Date: 20231128
  Transmission Date: 20240110
  Serious: No
  Sender: FDA-Public Use
  Company Number: CA-PFIZER INC-PV202300179700

PATIENT
  Age: 93 Year
  Sex: Female

DRUGS (1)
  1. RUXIENCE [Suspect]
     Active Substance: RITUXIMAB-PVVR
     Indication: Immune thrombocytopenia
     Dosage: 375 MG/M2, WEEKLY (QUANTITY: 4DOSES.375X1.64M2=615 MG)

REACTIONS (1)
  - Off label use [Unknown]
